FAERS Safety Report 4627255-2 (Version None)
Quarter: 2005Q1

REPORT INFORMATION
  Report Type: 
  Country: None (occurrence: None)
  Receive Date: 20050331
  Receipt Date: 20050315
  Transmission Date: 20050727
  Serious: Yes (Disabling)
  Sender: FDA-Public Use
  Company Number: 230249K04BRA

PATIENT
  Age: 35 Year
  Sex: Male
  Weight: 52 kg

DRUGS (6)
  1. REBIF [Suspect]
     Dosage: 44 MCG, 3 IN 1 WEEKS, SUBCUTANEOUS
     Route: 058
     Dates: start: 20040806, end: 20041110
  2. REBIF [Suspect]
     Dosage: 44 MCG, 3 IN 1 WEEKS, SUBCUTANEOUS
     Route: 058
     Dates: start: 20041123
  3. REBIF [Suspect]
     Dosage: 44 MCG, 3 IN 1 WEEKS, SUBCUTANEOUS
     Route: 058
     Dates: start: 20050304
  4. CLONAZEPAM [Concomitant]
  5. DIPROSPAN [Concomitant]
  6. OXYBUTYNIN [Concomitant]

REACTIONS (11)
  - ARTHRALGIA [None]
  - DIPLEGIA [None]
  - FEELING ABNORMAL [None]
  - HEADACHE [None]
  - HYPOAESTHESIA [None]
  - PAIN [None]
  - PAIN IN EXTREMITY [None]
  - PARAESTHESIA [None]
  - PYREXIA [None]
  - RHINORRHOEA [None]
  - VISION BLURRED [None]
